FAERS Safety Report 6316341-7 (Version None)
Quarter: 2009Q3

REPORT INFORMATION
  Report Type: 
  Country: None (occurrence: None)
  Receive Date: 20090820
  Receipt Date: 20090811
  Transmission Date: 20100115
  Serious: Yes (Death, Hospitalization)
  Sender: FDA-Public Use
  Company Number: A0801777A

PATIENT
  Age: 52 Year
  Sex: Male
  Weight: 113.2 kg

DRUGS (1)
  1. AVANDIA [Suspect]
     Dosage: 8MG PER DAY
     Route: 048
     Dates: start: 20001201, end: 20030801

REACTIONS (2)
  - ARTERIOSCLEROSIS [None]
  - CARDIAC ARREST [None]
